FAERS Safety Report 14276999 (Version 1)
Quarter: 2017Q4

REPORT INFORMATION
  Report Type: Report from Study
  Country: US (occurrence: US)
  Receive Date: 20171212
  Receipt Date: 20171212
  Transmission Date: 20180321
  Serious: Yes (Hospitalization, Other)
  Sender: FDA-Public Use
  Company Number: US-ROCHE-1706707

PATIENT
  Age: 28 Year
  Sex: Female

DRUGS (84)
  1. RANIBIZUMAB. [Suspect]
     Active Substance: RANIBIZUMAB
     Dosage: RIGHT EYE
     Route: 050
     Dates: start: 20150723
  2. RANIBIZUMAB. [Suspect]
     Active Substance: RANIBIZUMAB
     Dosage: RIGHT EYE
     Route: 050
     Dates: start: 20130124, end: 20130124
  3. LISINOPRIL. [Concomitant]
     Active Substance: LISINOPRIL
     Route: 048
     Dates: start: 20140107
  4. VANCOMYCIN [Concomitant]
     Active Substance: VANCOMYCIN
     Indication: ABDOMINAL DISCOMFORT
     Route: 050
     Dates: start: 20140108
  5. CIPROFLOXACIN. [Concomitant]
     Active Substance: CIPROFLOXACIN
     Indication: URINARY TRACT INFECTION
     Route: 048
     Dates: start: 20140724, end: 20140727
  6. CIPROFLOXACIN. [Concomitant]
     Active Substance: CIPROFLOXACIN
     Dosage: AS TREATMENT FOR OSTEOMYELITIS
     Route: 048
     Dates: start: 20151013
  7. NORVASC [Concomitant]
     Active Substance: AMLODIPINE BESYLATE
     Indication: HYPOTENSION
     Route: 048
     Dates: start: 20140624
  8. LEVOPHED [Concomitant]
     Active Substance: NOREPINEPHRINE BITARTRATE
     Indication: HYPOTENSION
     Dosage: ONE TIME TREATMENT
     Route: 042
     Dates: start: 20140801, end: 20140802
  9. LASIX [Concomitant]
     Active Substance: FUROSEMIDE
     Indication: CARDIAC FAILURE CONGESTIVE
     Dosage: START DATE: ESTIMATED FEBRUARY 2015
     Route: 048
  10. AMLODIPINE [Concomitant]
     Active Substance: AMLODIPINE BESYLATE
     Indication: CARDIAC FAILURE CONGESTIVE
     Route: 048
     Dates: start: 20150222
  11. FLAGYL [Concomitant]
     Active Substance: METRONIDAZOLE\METRONIDAZOLE HYDROCHLORIDE
     Indication: CLOSTRIDIUM DIFFICILE COLITIS
     Route: 048
     Dates: start: 201602
  12. RANIBIZUMAB. [Suspect]
     Active Substance: RANIBIZUMAB
     Dosage: RIGHT EYE
     Route: 050
     Dates: start: 20121127, end: 20121127
  13. RANIBIZUMAB. [Suspect]
     Active Substance: RANIBIZUMAB
     Dosage: RIGHT EYE
     Route: 050
     Dates: start: 20150331
  14. VENLAFAXINE [Concomitant]
     Active Substance: VENLAFAXINE HYDROCHLORIDE
     Indication: DEPRESSION
     Dosage: STARTED 1YR TO {5 YR AT THE TIME OF ENROLLMENT
     Route: 048
  15. JUNEL [Concomitant]
     Active Substance: ETHINYL ESTRADIOL\NORETHINDRONE ACETATE
     Indication: PROPHYLAXIS
     Dosage: STARTED 1YR TO {5 YR AT THE TIME OF ENROLLMENT?1.5-0.03 MG
     Route: 048
  16. ETHINYL ESTRADIOL/NORETHINDRONE [Concomitant]
     Active Substance: ETHINYL ESTRADIOL\NORETHINDRONE
     Indication: PROPHYLAXIS
     Dosage: 1.5-0.03 MG?STARTED 1YR TO {5 YR AT THE TIME OF ENROLLMENT
     Route: 048
  17. LYRICA [Concomitant]
     Active Substance: PREGABALIN
     Route: 048
     Dates: start: 20160725
  18. TEARS NATURALE FREE [Concomitant]
     Active Substance: DEXTRAN 70\HYPROMELLOSE 2910 (4000 MPA.S)
     Indication: EYE IRRITATION
     Route: 050
     Dates: start: 20130618, end: 20130618
  19. CIPROFLOXACIN. [Concomitant]
     Active Substance: CIPROFLOXACIN
     Route: 042
     Dates: start: 20140623, end: 20140625
  20. LEVOTHYROXINE. [Concomitant]
     Active Substance: LEVOTHYROXINE
     Indication: HYPERTHYROIDISM
     Route: 048
     Dates: start: 20150311
  21. ATORVASTATIN [Concomitant]
     Active Substance: ATORVASTATIN
     Indication: HYPERLIPIDAEMIA
     Route: 048
     Dates: start: 20150311
  22. LEVEMIR [Concomitant]
     Active Substance: INSULIN DETEMIR
     Indication: DIABETES MELLITUS
     Dosage: 5/15/UNITS
     Route: 058
     Dates: start: 20160725
  23. RANIBIZUMAB. [Suspect]
     Active Substance: RANIBIZUMAB
     Dosage: RIGHT EYE
     Route: 050
     Dates: start: 20121025
  24. BEVACIZUMAB. [Suspect]
     Active Substance: BEVACIZUMAB
     Indication: PRODUCT USED FOR UNKNOWN INDICATION
     Dosage: ONE TIME TREATMENT
     Route: 050
     Dates: start: 20140313, end: 20140313
  25. KEFZOL [Concomitant]
     Active Substance: CEFAZOLIN SODIUM
     Indication: LOCALISED INFECTION
     Route: 042
     Dates: start: 20131218, end: 20140211
  26. DIFLUCAN [Concomitant]
     Active Substance: FLUCONAZOLE
     Route: 048
     Dates: start: 20121119, end: 20121119
  27. PROMETHAZINE [Concomitant]
     Active Substance: PROMETHAZINE\PROMETHAZINE HYDROCHLORIDE
     Indication: LOCALISED INFECTION
     Route: 048
     Dates: start: 20140107
  28. ATROPINE. [Concomitant]
     Active Substance: ATROPINE
     Route: 065
     Dates: start: 20160719
  29. RANIBIZUMAB. [Suspect]
     Active Substance: RANIBIZUMAB
     Indication: DIABETIC RETINOPATHY
     Dosage: RIGHT EYE
     Route: 050
     Dates: start: 20121003
  30. RANIBIZUMAB. [Suspect]
     Active Substance: RANIBIZUMAB
     Dosage: RIGHT EYE
     Route: 050
     Dates: start: 20130523
  31. RANIBIZUMAB. [Suspect]
     Active Substance: RANIBIZUMAB
     Dosage: RIGHT EYE
     Route: 050
     Dates: start: 20121017, end: 20121017
  32. THYROXINE [Concomitant]
     Active Substance: LEVOTHYROXINE
     Route: 048
     Dates: start: 20121218
  33. ALEVE [Concomitant]
     Active Substance: NAPROXEN SODIUM
     Indication: HEADACHE
     Dosage: 2 PILLS
     Route: 048
     Dates: start: 20130322
  34. LYRICA [Concomitant]
     Active Substance: PREGABALIN
     Indication: NEUROPATHY PERIPHERAL
     Route: 048
     Dates: start: 20130306
  35. CIPROFLOXACIN. [Concomitant]
     Active Substance: CIPROFLOXACIN
     Route: 048
     Dates: start: 20160209
  36. MAGNESIUM OXIDE. [Concomitant]
     Active Substance: MAGNESIUM OXIDE
     Indication: PROPHYLAXIS
     Route: 048
     Dates: start: 20150221
  37. RANIBIZUMAB. [Suspect]
     Active Substance: RANIBIZUMAB
     Dosage: RIGHT EYE
     Route: 050
     Dates: start: 20130919
  38. RANIBIZUMAB. [Suspect]
     Active Substance: RANIBIZUMAB
     Dosage: RIGHT EYE
     Route: 050
     Dates: start: 20140717
  39. INSULIN GLARGINE [Concomitant]
     Active Substance: INSULIN GLARGINE
     Indication: DIABETES MELLITUS
     Dosage: STARTED 1YR TO {5 YR AT THE TIME OF ENROLLMENT
     Route: 058
  40. CYCLOPENTOLATE. [Concomitant]
     Active Substance: CYCLOPENTOLATE
     Indication: IRITIS
     Dosage: STARTED {=30 DAYS AT THE TIME OF ENROLLMENT
     Route: 050
     Dates: end: 20121009
  41. VENLAFAXINE [Concomitant]
     Active Substance: VENLAFAXINE HYDROCHLORIDE
     Route: 048
     Dates: end: 20131104
  42. VENLAFAXINE [Concomitant]
     Active Substance: VENLAFAXINE HYDROCHLORIDE
     Route: 048
     Dates: start: 20160725
  43. FLUCONAZOLE. [Concomitant]
     Active Substance: FLUCONAZOLE
     Indication: FUNGAL INFECTION
     Dosage: ONE TIME TREATMENT
     Route: 048
  44. NOVOLOG [Concomitant]
     Active Substance: INSULIN ASPART
     Indication: DIABETES MELLITUS INADEQUATE CONTROL
     Dosage: 2-12 VIALS
     Route: 058
     Dates: start: 20131228
  45. CIPROFLOXACIN. [Concomitant]
     Active Substance: CIPROFLOXACIN
     Route: 048
     Dates: start: 20140707, end: 20140717
  46. TISSUE PLASMINOGEN ACTIVATOR, RECOMBIN. [Concomitant]
     Indication: CEREBROVASCULAR ACCIDENT
     Dosage: ONE TIME TREATMENT
     Route: 042
     Dates: start: 20140815, end: 20140815
  47. DIFLUCAN [Concomitant]
     Active Substance: FLUCONAZOLE
     Indication: LOCALISED INFECTION
     Route: 048
     Dates: start: 20140107
  48. BEVACIZUMAB. [Suspect]
     Active Substance: BEVACIZUMAB
     Dosage: ONE TIME TREATMENT
     Route: 050
     Dates: start: 20131107, end: 20131107
  49. PREGABALIN. [Concomitant]
     Active Substance: PREGABALIN
     Dosage: STARTED 1YR TO {5 YR AT THE TIME OF ENROLLMENT
     Route: 048
  50. THYROXINE [Concomitant]
     Active Substance: LEVOTHYROXINE
     Indication: HYPERTHYROIDISM
     Dosage: STARTED 6 M TO {1 YR AT THE TIME OF ENROLLMENT
     Route: 048
     Dates: end: 20121217
  51. VENLAFAXINE [Concomitant]
     Active Substance: VENLAFAXINE HYDROCHLORIDE
     Route: 048
     Dates: end: 20131104
  52. TOBRADEX [Concomitant]
     Active Substance: DEXAMETHASONE\TOBRAMYCIN
     Route: 065
     Dates: start: 20160719
  53. PHENERGAN [Concomitant]
     Active Substance: PROMETHAZINE HYDROCHLORIDE
     Indication: ABDOMINAL DISCOMFORT
     Route: 048
     Dates: start: 20140107
  54. EYLEA [Concomitant]
     Active Substance: AFLIBERCEPT
     Dosage: ONE TIME TREATMENT
     Route: 050
     Dates: start: 20150818
  55. CARVEDILOL. [Concomitant]
     Active Substance: CARVEDILOL
     Indication: HYPERTENSION
     Route: 048
     Dates: start: 20150223
  56. AUGMENTIN [Concomitant]
     Active Substance: AMOXICILLIN\CLAVULANATE POTASSIUM
     Indication: LOCALISED INFECTION
     Dosage: 500-125 MG
     Route: 048
     Dates: start: 20131106, end: 20131112
  57. NEPHROCAPS [Concomitant]
     Active Substance: ASCORBIC ACID\BIOTIN\CYANOCOBALAMIN\FOLIC ACID\NIACIN\PANTOTHENIC ACID\PYRIDOXINE\RIBOFLAVIN\THIAMINE
     Indication: RENAL IMPAIRMENT
     Dosage: 1 CAPSULE?START DATE: ESTIMATED FEB/2015
     Route: 048
  58. FERROUS SULFATE. [Concomitant]
     Active Substance: FERROUS SULFATE
     Route: 048
     Dates: start: 201403
  59. RANIBIZUMAB. [Suspect]
     Active Substance: RANIBIZUMAB
     Dosage: RIGHT EYE
     Route: 050
     Dates: start: 20121220
  60. RANIBIZUMAB. [Suspect]
     Active Substance: RANIBIZUMAB
     Dosage: RIGHT EYE
     Route: 050
     Dates: start: 20130422
  61. RANIBIZUMAB. [Suspect]
     Active Substance: RANIBIZUMAB
     Route: 050
     Dates: start: 20160606
  62. TRAZODONE [Concomitant]
     Active Substance: TRAZODONE HYDROCHLORIDE
     Indication: INSOMNIA
     Dosage: STARTED 1YR TO {5 YR AT THE TIME OF ENROLLMENT
     Route: 048
  63. PREDNISOLONE ACETATE. [Concomitant]
     Active Substance: PREDNISOLONE ACETATE
     Dosage: 1 GTT DROPS
     Route: 050
     Dates: start: 20121011, end: 20121014
  64. LANTUS [Concomitant]
     Active Substance: INSULIN GLARGINE
     Indication: DIABETES MELLITUS
     Dosage: 35 UNITS
     Route: 058
     Dates: start: 20130212
  65. OXYCODONE [Concomitant]
     Active Substance: OXYCODONE
     Indication: PYELONEPHRITIS
     Route: 048
     Dates: start: 20140707
  66. PLAVIX [Concomitant]
     Active Substance: CLOPIDOGREL BISULFATE
     Indication: CEREBROVASCULAR ACCIDENT
     Route: 048
     Dates: start: 20140801
  67. EYLEA [Concomitant]
     Active Substance: AFLIBERCEPT
     Indication: VITREOUS HAEMORRHAGE
     Dosage: ONE TIME TREATMENT
     Route: 050
     Dates: start: 20150331
  68. CARVEDILOL. [Concomitant]
     Active Substance: CARVEDILOL
     Indication: CARDIAC FAILURE CONGESTIVE
     Route: 048
     Dates: start: 20160725
  69. FERROUS SULFATE. [Concomitant]
     Active Substance: FERROUS SULFATE
     Dosage: START DATE: ESTIMATED MARCH 2014
     Route: 048
  70. DICLOXACILLIN [Concomitant]
     Active Substance: DICLOXACILLIN
     Indication: OSTEOMYELITIS
     Route: 048
     Dates: start: 20160725
  71. RANIBIZUMAB. [Suspect]
     Active Substance: RANIBIZUMAB
     Dosage: RIGHT EYE
     Route: 050
     Dates: start: 20140303
  72. BEVACIZUMAB. [Suspect]
     Active Substance: BEVACIZUMAB
     Dosage: ONE TIME TREATMENT
     Route: 050
     Dates: start: 20130920, end: 20130920
  73. PREDNISOLONE ACETATE. [Concomitant]
     Active Substance: PREDNISOLONE ACETATE
     Indication: IRITIS
     Dosage: STARTED {=30 DAYS AT THE TIME OF ENROLLMENT
     Route: 065
     Dates: start: 20121009
  74. PREDNISOLONE ACETATE. [Concomitant]
     Active Substance: PREDNISOLONE ACETATE
     Dosage: 1 GTT DROPS
     Route: 050
     Dates: start: 20131115, end: 20131121
  75. TOBRADEX [Concomitant]
     Active Substance: DEXAMETHASONE\TOBRAMYCIN
     Indication: EYE PAIN
     Dosage: 1 GTT DROPS
     Route: 050
     Dates: start: 20130125, end: 20130127
  76. PROCHLORPERAZINE. [Concomitant]
     Active Substance: PROCHLORPERAZINE
     Indication: NAUSEA
     Route: 048
     Dates: start: 20130209, end: 20130213
  77. MIDODRINE [Concomitant]
     Active Substance: MIDODRINE
     Indication: HYPOTENSION
     Route: 048
     Dates: start: 20140413
  78. ACETAMINOPHEN/TRAMADOL HYDROCHLORIDE [Concomitant]
     Active Substance: ACETAMINOPHEN\TRAMADOL HYDROCHLORIDE
     Indication: FLANK PAIN
     Dosage: ONE TIME TREATMENT
     Route: 048
     Dates: start: 20140404, end: 20140407
  79. CIPROFLOXACIN. [Concomitant]
     Active Substance: CIPROFLOXACIN
     Indication: PYELONEPHRITIS
     Route: 048
     Dates: start: 20140621, end: 20140624
  80. COREG [Concomitant]
     Active Substance: CARVEDILOL
     Indication: VENTRICULAR HYPOKINESIA
     Route: 048
     Dates: start: 20140801
  81. BUSPIRONE [Concomitant]
     Active Substance: BUSPIRONE HYDROCHLORIDE
     Indication: ANXIETY
     Route: 048
     Dates: start: 20150223
  82. OXYCONTIN [Concomitant]
     Active Substance: OXYCODONE HYDROCHLORIDE
     Indication: LOCALISED INFECTION
     Route: 048
     Dates: start: 20140107
  83. ULTRAM [Concomitant]
     Active Substance: TRAMADOL HYDROCHLORIDE
     Indication: LOCALISED INFECTION
     Route: 048
     Dates: start: 20140107
  84. SEVELAMER [Concomitant]
     Active Substance: SEVELAMER
     Indication: RENAL IMPAIRMENT
     Dosage: 800 PILLS?START DATE: ESTIMATED FEB/2015
     Route: 048

REACTIONS (19)
  - Acute kidney injury [Not Recovered/Not Resolved]
  - Cerebrovascular accident [Not Recovered/Not Resolved]
  - Diabetic ketoacidosis [Recovered/Resolved]
  - Autonomic nervous system imbalance [Not Recovered/Not Resolved]
  - Pyelonephritis [Recovered/Resolved]
  - Flank pain [Recovered/Resolved]
  - Anterior chamber angle neovascularisation [Recovered/Resolved]
  - Fluid overload [Not Recovered/Not Resolved]
  - Diabetic ketoacidosis [Recovered/Resolved]
  - Localised infection [Recovered/Resolved]
  - Diabetes mellitus inadequate control [Recovered/Resolved]
  - Staphylococcal infection [Recovered/Resolved with Sequelae]
  - Osteomyelitis [Not Recovered/Not Resolved]
  - Abdominal discomfort [Recovered/Resolved]
  - Syncope [Not Recovered/Not Resolved]
  - Abdominal pain upper [Not Recovered/Not Resolved]
  - Gastrointestinal disorder [Recovered/Resolved]
  - Labile blood pressure [Recovered/Resolved]
  - Urinary tract infection [Recovered/Resolved]

NARRATIVE: CASE EVENT DATE: 20130209
